FAERS Safety Report 16349542 (Version 1)
Quarter: 2019Q2

REPORT INFORMATION
  Report Type: Spontaneous
  Country: DE (occurrence: DE)
  Receive Date: 20190523
  Receipt Date: 20190523
  Transmission Date: 20190711
  Serious: Yes (Death)
  Sender: FDA-Public Use
  Company Number: DE-WHANIN PHARM. CO., LTD.-2019M1048164

PATIENT
  Age: 53 Year
  Sex: Male
  Weight: 109 kg

DRUGS (5)
  1. TREMARIT [Concomitant]
     Indication: PRODUCT USED FOR UNKNOWN INDICATION
     Dosage: 15 MILLIGRAM, QD
     Route: 048
     Dates: start: 200110
  2. IMPORTAL [Concomitant]
     Active Substance: LACTITOL
     Indication: PRODUCT USED FOR UNKNOWN INDICATION
     Dosage: UNK
     Route: 048
  3. NORVASK                            /00972401/ [Concomitant]
     Active Substance: AMLODIPINE BESYLATE
     Indication: PRODUCT USED FOR UNKNOWN INDICATION
     Dosage: UNK
     Route: 048
  4. LEPONEX [Suspect]
     Active Substance: CLOZAPINE
     Indication: SCHIZOPHRENIA
     Dosage: 800 MILLIGRAM, QD
     Route: 048
     Dates: start: 200108
  5. FELODIPINE. [Concomitant]
     Active Substance: FELODIPINE
     Indication: PRODUCT USED FOR UNKNOWN INDICATION
     Dosage: 1 DOSAGE FORM, QD
     Route: 048

REACTIONS (4)
  - Abnormal weight gain [Unknown]
  - Salivary hypersecretion [Unknown]
  - Fall [Fatal]
  - Blood potassium decreased [Unknown]

NARRATIVE: CASE EVENT DATE: 20031111
